FAERS Safety Report 15757208 (Version 1)
Quarter: 2018Q4

REPORT INFORMATION
  Report Type: Spontaneous
  Country: US (occurrence: US)
  Receive Date: 20181206
  Receipt Date: 20181206
  Transmission Date: 20190205
  Serious: Yes (Disabling, Other)
  Sender: FDA-Public Use
  Company Number: None

PATIENT
  Age: 61 Year
  Sex: Female
  Weight: 78.75 kg

DRUGS (10)
  1. TYSABRI [Suspect]
     Active Substance: NATALIZUMAB
     Indication: MULTIPLE SCLEROSIS
     Route: 030
     Dates: start: 20150110, end: 20150610
  2. COPAXONE [Concomitant]
     Active Substance: GLATIRAMER ACETATE
  3. MODAFINIL. [Concomitant]
     Active Substance: MODAFINIL
  4. LEVATROXIN SODIUM [Concomitant]
  5. GABAPENTIN. [Concomitant]
     Active Substance: GABAPENTIN
  6. METFORMIN [Concomitant]
     Active Substance: METFORMIN HYDROCHLORIDE
  7. ASIDOLPHIS [Concomitant]
  8. LYRICA [Concomitant]
     Active Substance: PREGABALIN
  9. ATOVASTIN [Concomitant]
  10. NO DRUG NAME [Concomitant]

REACTIONS (2)
  - Erythema [None]
  - Feeling hot [None]

NARRATIVE: CASE EVENT DATE: 20150610
